FAERS Safety Report 7814524-8 (Version None)
Quarter: 2011Q4

REPORT INFORMATION
  Report Type: 
  Country: None (occurrence: None)
  Receive Date: 20111014
  Receipt Date: 20111007
  Transmission Date: 20120403
  Serious: Yes (Hospitalization, Other)
  Sender: FDA-Public Use
  Company Number: DE-SANOFI-AVENTIS-2011SA048149

PATIENT
  Age: 73 Year
  Sex: Male
  Weight: 82 kg

DRUGS (13)
  1. GLIMEPIRIDE [Concomitant]
  2. THIAZIDES [Concomitant]
     Route: 065
  3. AMLODIPINE [Concomitant]
     Route: 065
  4. CLOPIDOGREL [Concomitant]
     Route: 065
  5. DIGITOXIN TAB [Concomitant]
  6. PANTOPRAZOLE SODIUM [Concomitant]
  7. TAMSULOSIN HCL [Concomitant]
     Route: 065
  8. METFORMIN HYDROCHLORIDE [Concomitant]
     Route: 065
  9. ALISKIREN [Concomitant]
  10. PHENPROCOUMON [Concomitant]
     Route: 065
  11. DRONEDARONE HCL [Suspect]
     Indication: ATRIAL FIBRILLATION
     Route: 048
     Dates: start: 20110324, end: 20110708
  12. BISOPROLOL [Concomitant]
     Route: 065
  13. VALSARTAN [Concomitant]
     Route: 065

REACTIONS (2)
  - CAROTID ARTERY STENOSIS [None]
  - POST PROCEDURAL HAEMORRHAGE [None]
